FAERS Safety Report 23265021 (Version 6)
Quarter: 2024Q1

REPORT INFORMATION
  Report Type: Spontaneous
  Country: US (occurrence: US)
  Receive Date: 20231206
  Receipt Date: 20240227
  Transmission Date: 20240409
  Serious: No
  Sender: FDA-Public Use
  Company Number: US-LUPIN PHARMACEUTICALS INC.-2023-10718

PATIENT

DRUGS (2)
  1. ALBUTEROL SULFATE [Suspect]
     Active Substance: ALBUTEROL SULFATE
     Indication: Asthma
     Dosage: UNK HAD 3 PACKS IN OCTOBER
  2. ALBUTEROL SULFATE [Suspect]
     Active Substance: ALBUTEROL SULFATE
     Indication: Respiratory disorder
     Dosage: UNK, Q4H (2 PUFFS)
     Dates: start: 202311

REACTIONS (3)
  - Illness [Recovered/Resolved]
  - Wrong technique in product usage process [Unknown]
  - Device information output issue [Unknown]
